FAERS Safety Report 8836905 (Version 1)
Quarter: 2012Q4

REPORT INFORMATION
  Report Type: Spontaneous
  Country: AU (occurrence: None)
  Receive Date: 20121010
  Receipt Date: 20121010
  Transmission Date: 20130627
  Serious: Yes (Hospitalization)
  Sender: FDA-Public Use
  Company Number: B0835844A

PATIENT
  Age: 82 Year
  Sex: Male

DRUGS (4)
  1. VANCOMYCIN [Suspect]
  2. GENTAMICIN SULPHATE [Suspect]
  3. METRONIDAZOLE (METRONIDAZOLE) [Suspect]
  4. TIMENTIN (ITICARCILLIN NA+K CLAVULAN) [Suspect]

REACTIONS (10)
  - Wound haemorrhage [None]
  - Wound dehiscence [None]
  - Wound infection staphylococcal [None]
  - Klebsiella infection [None]
  - Wound infection [None]
  - Wound infection staphylococcal [None]
  - Haematoma [None]
  - Pseudomonas infection [None]
  - Bacillus infection [None]
  - Renal failure [None]
